FAERS Safety Report 15743213 (Version 1)
Quarter: 2018Q4

REPORT INFORMATION
  Report Type: Spontaneous
  Country: US (occurrence: US)
  Receive Date: 20181220
  Receipt Date: 20181220
  Transmission Date: 20190205
  Serious: Yes (Other)
  Sender: FDA-Public Use
  Company Number: US-ROCHE-2227746

PATIENT
  Age: 62 Year
  Sex: Female
  Weight: 69.92 kg

DRUGS (2)
  1. AVASTIN [Suspect]
     Active Substance: BEVACIZUMAB
     Dosage: RIGHT EYE
     Route: 065
     Dates: start: 20181130
  2. AVASTIN [Suspect]
     Active Substance: BEVACIZUMAB
     Indication: RETINAL OEDEMA
     Dosage: LEFT EYE
     Route: 065

REACTIONS (9)
  - Blood pressure increased [Unknown]
  - Blood cholesterol increased [Unknown]
  - Retinal detachment [Unknown]
  - Feeling abnormal [Unknown]
  - Headache [Not Recovered/Not Resolved]
  - Stress [Unknown]
  - Off label use [Unknown]
  - Retinal oedema [Unknown]
  - Intentional product use issue [Unknown]

NARRATIVE: CASE EVENT DATE: 20181130
